FAERS Safety Report 8218619-9 (Version None)
Quarter: 2012Q1

REPORT INFORMATION
  Report Type: 
  Country: None (occurrence: None)
  Receive Date: 20120319
  Receipt Date: 20120312
  Transmission Date: 20120608
  Serious: Yes (Hospitalization)
  Sender: FDA-Public Use
  Company Number: CZ-B.I. PHARMACEUTICALS,INC./RIDGEFIELD-2012-EU-01216EU

PATIENT
  Sex: Female
  Weight: 77 kg

DRUGS (10)
  1. ATORVASTATIN [Concomitant]
     Indication: HYPERLIPIDAEMIA
     Dosage: 20 MG
     Route: 048
  2. HUMULIN R [Concomitant]
     Indication: DIABETES MELLITUS
     Dosage: 46 U
     Route: 058
  3. FUROSEMIDE [Concomitant]
     Indication: HYPERTENSION
     Dosage: 40 MG
     Route: 048
  4. DABIGATRAN [Suspect]
     Indication: ATRIAL FIBRILLATION
  5. AGGRENOX [Concomitant]
     Indication: CEREBROVASCULAR ACCIDENT
     Dosage: 2 ANZ
     Route: 048
  6. METHIMAZOLE [Concomitant]
     Indication: ILL-DEFINED DISORDER
     Dosage: 5 MG
     Route: 048
  7. DIGOXIN [Concomitant]
     Indication: ATRIAL FIBRILLATION
     Dosage: 0.125 MG
     Route: 048
  8. PRENESSA [Concomitant]
     Indication: HYPERTENSION
     Dosage: 4 MG
     Route: 048
  9. DABIGATRAN [Suspect]
     Indication: CEREBROVASCULAR ACCIDENT PROPHYLAXIS
     Route: 048
  10. ATRAM [Concomitant]
     Indication: HYPERTENSION
     Dosage: 25 MG
     Route: 048

REACTIONS (1)
  - DIABETES MELLITUS [None]
